FAERS Safety Report 8815611 (Version 2)
Quarter: 2012Q4

REPORT INFORMATION
  Report Type: 
  Country: US (occurrence: US)
  Receive Date: 20120928
  Receipt Date: 20121112
  Transmission Date: 20130627
  Serious: Yes (Death)
  Sender: FDA-Public Use
  Company Number: US-CELGENEUS-163-21880-12093139

PATIENT
  Age: 64 Year
  Sex: Female

DRUGS (2)
  1. REVLIMID [Suspect]
     Indication: CHRONIC LYMPHOID LEUKEMIA WITHOUT MENTION OF REMISSION
     Dosage: 2.5 Milligram
     Route: 048
     Dates: start: 20120916, end: 20120918
  2. ALLOPURINOL [Concomitant]
     Indication: PROPHYLAXIS
     Route: 065
     Dates: start: 20120916

REACTIONS (1)
  - Chronic lymphocytic leukaemia [Fatal]
